FAERS Safety Report 7917638-7 (Version None)
Quarter: 2011Q4

REPORT INFORMATION
  Report Type: 
  Country: None (occurrence: None)
  Receive Date: 20111116
  Receipt Date: 20111103
  Transmission Date: 20120403
  Serious: Yes (Hospitalization)
  Sender: FDA-Public Use
  Company Number: US-ELI_LILLY_AND_COMPANY-US201111002782

PATIENT
  Sex: Female

DRUGS (9)
  1. DICLOFENAC SODIUM [Concomitant]
  2. TALACEN [Concomitant]
  3. COLACE [Concomitant]
  4. METFORMIN HCL [Concomitant]
  5. ZYPREXA RELPREVV [Suspect]
     Indication: SCHIZOAFFECTIVE DISORDER
     Dosage: 405 MG, EVERY 4 WEEKS
     Route: 030
     Dates: start: 20110425
  6. ROBAXIN [Concomitant]
  7. TRAMADOL HCL [Concomitant]
  8. GABAPENTIN [Concomitant]
  9. ABILIFY [Concomitant]

REACTIONS (2)
  - HOSPITALISATION [None]
  - AGGRESSION [None]
